FAERS Safety Report 7464441-0 (Version None)
Quarter: 2011Q2

REPORT INFORMATION
  Report Type: 
  Country: None (occurrence: None)
  Receive Date: 20110509
  Receipt Date: 20110505
  Transmission Date: 20111010
  Serious: No
  Sender: FDA-Public Use
  Company Number: US-PFIZER INC-2011097409

PATIENT
  Sex: Male
  Weight: 78 kg

DRUGS (3)
  1. SEROQUEL [Concomitant]
     Indication: MOOD SWINGS
     Dosage: 50 MG, 1X/DAY
     Route: 048
  2. SEROQUEL [Concomitant]
     Indication: ANXIETY
  3. CHANTIX [Suspect]
     Indication: SMOKING CESSATION THERAPY
     Dosage: 0.5 MG, 1X/DAY
     Route: 048
     Dates: start: 20110503, end: 20110505

REACTIONS (1)
  - TONGUE EXFOLIATION [None]
